FAERS Safety Report 10686021 (Version 1)
Quarter: 2014Q4

REPORT INFORMATION
  Report Type: Spontaneous
  Country: US (occurrence: US)
  Receive Date: 20141231
  Receipt Date: 20141231
  Transmission Date: 20150529
  Serious: No
  Sender: FDA-Public Use
  Company Number: US-ASTRAZENECA-2014SE86596

PATIENT
  Age: 68 Year
  Sex: Female
  Weight: 117.9 kg

DRUGS (6)
  1. QUINIPRIL [Concomitant]
     Indication: HYPERTENSION
  2. WELLBUTRIN (GEN) [Concomitant]
     Indication: DEPRESSION
  3. SYMBICORT [Suspect]
     Active Substance: BUDESONIDE\FORMOTEROL FUMARATE DIHYDRATE
     Indication: ASTHMA
     Dosage: 160/4.5, 2 PUFFS BID
     Route: 055
  4. THYROXINE [Concomitant]
     Active Substance: LEVOTHYROXINE
     Indication: THYROID DISORDER
  5. TRIEMTERINE [Concomitant]
     Indication: HYPERTENSION
  6. PANTOPROZOLE SODIUM [Concomitant]
     Indication: GASTROOESOPHAGEAL REFLUX DISEASE

REACTIONS (4)
  - Weight decreased [Unknown]
  - Gastrooesophageal reflux disease [Unknown]
  - Intentional product misuse [Not Recovered/Not Resolved]
  - Dysgeusia [Not Recovered/Not Resolved]

NARRATIVE: CASE EVENT DATE: 2013
